FAERS Safety Report 11325317 (Version 1)
Quarter: 2015Q3

REPORT INFORMATION
  Report Type: Report from Study
  Country: US (occurrence: US)
  Receive Date: 20150730
  Receipt Date: 20150730
  Transmission Date: 20151125
  Serious: Yes (Hospitalization)
  Sender: FDA-Public Use
  Company Number: US-GILEAD-2015-0164746

PATIENT
  Sex: Male

DRUGS (5)
  1. LEDIPASVIR/SOFOSBUVIR [Suspect]
     Active Substance: LEDIPASVIR\SOFOSBUVIR
     Dosage: 1 DF, UNK
     Route: 048
     Dates: start: 20150621, end: 20150622
  2. LEDIPASVIR/SOFOSBUVIR [Suspect]
     Active Substance: LEDIPASVIR\SOFOSBUVIR
     Dosage: UNK
  3. LEDIPASVIR/SOFOSBUVIR [Suspect]
     Active Substance: LEDIPASVIR\SOFOSBUVIR
     Indication: CHRONIC HEPATITIS C
     Dosage: 2 DF, QD
     Route: 048
     Dates: start: 20150622, end: 20150623
  4. LEDIPASVIR/SOFOSBUVIR [Suspect]
     Active Substance: LEDIPASVIR\SOFOSBUVIR
     Dosage: 1 DF, UNK
     Route: 048
     Dates: start: 201507, end: 201507
  5. PENICILLIN                         /00000901/ [Suspect]
     Active Substance: PENICILLIN G
     Indication: TOOTH ABSCESS
     Dosage: UNK DF, UNK
     Route: 048
     Dates: end: 201507

REACTIONS (4)
  - Overdose [Unknown]
  - Urticaria [Unknown]
  - Pruritus [Unknown]
  - Headache [Unknown]

NARRATIVE: CASE EVENT DATE: 20150622
